FAERS Safety Report 5910925-3 (Version None)
Quarter: 2008Q4

REPORT INFORMATION
  Report Type: 
  Country: None (occurrence: None)
  Receive Date: 20081007
  Receipt Date: 20080919
  Transmission Date: 20090506
  Serious: Yes (Hospitalization)
  Sender: FDA-Public Use
  Company Number: US-ASTRAZENECA-2008UW13801

PATIENT
  Age: 80 Year
  Sex: Female

DRUGS (8)
  1. ARIMIDEX [Suspect]
     Route: 048
     Dates: end: 20080717
  2. TAMOXIFEN CITRATE [Suspect]
     Route: 048
  3. PLAVIX [Concomitant]
  4. TOPROL-XL [Concomitant]
     Route: 048
  5. PRAZOSIN HCL [Concomitant]
  6. QUESTRAN [Concomitant]
  7. ASPIRIN [Concomitant]
  8. VITAMINS [Concomitant]

REACTIONS (5)
  - BLISTER [None]
  - BLOOD PRESSURE INCREASED [None]
  - ERYTHEMA [None]
  - HEART RATE INCREASED [None]
  - PRURITUS [None]
